FAERS Safety Report 23692128 (Version 3)
Quarter: 2024Q3

REPORT INFORMATION
  Report Type: Report from Study
  Country: CA (occurrence: CA)
  Receive Date: 20240401
  Receipt Date: 20240706
  Transmission Date: 20241016
  Serious: Yes (Other)
  Sender: SANOFI AVENTIS
  Company Number: CA-SA-SAC20240208000844

PATIENT
  Age: 53 Year
  Sex: Female

DRUGS (8)
  1. BELUMOSUDIL MESYLATE [Suspect]
     Active Substance: BELUMOSUDIL MESYLATE
     Indication: Chronic graft versus host disease
     Dosage: 200 MG, QD
     Route: 048
     Dates: start: 20231130, end: 20240528
  2. ACYCLOVIR [Suspect]
     Active Substance: ACYCLOVIR
  3. SEPTRA [Suspect]
     Active Substance: SULFAMETHOXAZOLE\TRIMETHOPRIM
     Dosage: UNK
     Dates: end: 20240220
  4. PREMARIN [Concomitant]
     Active Substance: ESTROGENS, CONJUGATED
     Dosage: UNK
  5. VALACYCLOVIR [Concomitant]
     Active Substance: VALACYCLOVIR HYDROCHLORIDE
     Dosage: UNK
  6. VITAMIN D NOS [Concomitant]
     Active Substance: CHOLECALCIFEROL\ERGOCALCIFEROL
     Dosage: UNK
  7. ROSUVASTATIN [Concomitant]
     Active Substance: ROSUVASTATIN
     Dosage: 10MG,DAILY
  8. ASPIRIN [Concomitant]
     Active Substance: ASPIRIN

REACTIONS (11)
  - Transient ischaemic attack [Recovered/Resolved]
  - Blindness transient [Recovered/Resolved]
  - Glomerular filtration rate abnormal [Unknown]
  - Joint range of motion decreased [Unknown]
  - Musculoskeletal pain [Not Recovered/Not Resolved]
  - Ophthalmic migraine [Recovered/Resolved]
  - COVID-19 [Recovered/Resolved]
  - Cough [Recovered/Resolved]
  - Eye infection [Unknown]
  - Pharyngitis [Unknown]
  - Nausea [Not Recovered/Not Resolved]

NARRATIVE: CASE EVENT DATE: 20240118
